FAERS Safety Report 10107043 (Version 2)
Quarter: 2014Q3

REPORT INFORMATION
  Report Type: Other
  Country: US (occurrence: US)
  Receive Date: 20140424
  Receipt Date: 20140717
  Transmission Date: 20150326
  Serious: Yes (Hospitalization, Other)
  Sender: FDA-Public Use
  Company Number: US-GSKPPD-2014GSK001575

PATIENT
  Age: 66 Year
  Sex: Male

DRUGS (4)
  1. LISINOPRIL. [Concomitant]
     Active Substance: LISINOPRIL
  2. ISORDIL [Concomitant]
     Active Substance: ISOSORBIDE DINITRATE
  3. ATENOLOL. [Concomitant]
     Active Substance: ATENOLOL
  4. AVANDIA [Suspect]
     Active Substance: ROSIGLITAZONE MALEATE
     Indication: DIABETES MELLITUS
     Dosage: AVANDIA WAS NOT LISTED AMONG THE PATIENTS RECORDS REVIEWED.
     Route: 048

REACTIONS (2)
  - Myocardial infarction [None]
  - Chest pain [Recovered/Resolved]

NARRATIVE: CASE EVENT DATE: 20051029
